FAERS Safety Report 9732644 (Version 2)
Quarter: 2013Q4

REPORT INFORMATION
  Report Type: Spontaneous
  Country: IT (occurrence: IT)
  Receive Date: 20131205
  Receipt Date: 20131219
  Transmission Date: 20140711
  Serious: Yes (Hospitalization)
  Sender: FDA-Public Use
  Company Number: IT-JNJFOC-20131118295

PATIENT
  Age: 17 Year
  Sex: Male

DRUGS (1)
  1. HALOPERIDOL [Suspect]
     Indication: GENERALISED NON-CONVULSIVE EPILEPSY
     Route: 048
     Dates: start: 20130812, end: 20130814

REACTIONS (3)
  - Extrapyramidal disorder [Recovered/Resolved]
  - Muscle contractions involuntary [Recovered/Resolved]
  - Off label use [Unknown]
